FAERS Safety Report 5365166-8 (Version None)
Quarter: 2007Q2

REPORT INFORMATION
  Report Type: 
  Country: None (occurrence: None)
  Receive Date: 20070530
  Receipt Date: 20070124
  Transmission Date: 20071010
  Serious: No
  Sender: FDA-Public Use
  Company Number: 2007PV028934

PATIENT
  Age: 63 Year
  Sex: Female

DRUGS (4)
  1. BYETTA [Suspect]
     Indication: DIABETES MELLITUS NON-INSULIN-DEPENDENT
     Dosage: 5 MCG;BID;SC
     Route: 058
     Dates: start: 20070118
  2. AUGMENTIN '125' [Suspect]
     Indication: OSTEOMYELITIS
     Dosage: 1000 MG;BID;PO
     Route: 048
     Dates: start: 20070119
  3. METFORMIN HCL [Concomitant]
  4. LYRICA [Concomitant]

REACTIONS (7)
  - DIARRHOEA [None]
  - ENDODONTIC PROCEDURE [None]
  - HYPOAESTHESIA ORAL [None]
  - MALAISE [None]
  - NAUSEA [None]
  - PARAESTHESIA ORAL [None]
  - POST PROCEDURAL INFECTION [None]
